FAERS Safety Report 13106783 (Version 1)
Quarter: 2017Q1

REPORT INFORMATION
  Report Type: Spontaneous
  Country: DE (occurrence: DE)
  Receive Date: 20170111
  Receipt Date: 20170111
  Transmission Date: 20170428
  Serious: Yes (Life-Threatening, Hospitalization)
  Sender: FDA-Public Use
  Company Number: GXKR2017DE000490

PATIENT

DRUGS (1)
  1. CEFUROXIM 1 A PHARMA [Suspect]
     Active Substance: CEFUROXIME
     Indication: BRONCHITIS
     Dosage: 500 MG, QD
     Route: 048
     Dates: start: 20161212

REACTIONS (4)
  - Swollen tongue [Recovered/Resolved]
  - Anaphylactic shock [Recovered/Resolved]
  - Haemodynamic instability [Recovered/Resolved]
  - Pruritus [Recovered/Resolved]

NARRATIVE: CASE EVENT DATE: 20161212
